FAERS Safety Report 24734836 (Version 1)
Quarter: 2024Q4

REPORT INFORMATION
  Report Type: Spontaneous
  Country: US (occurrence: US)
  Receive Date: 20241215
  Receipt Date: 20241215
  Transmission Date: 20250114
  Serious: No
  Sender: DR REDDYS
  Company Number: US-DRL-USA-SPO/USA/24/0018350

PATIENT
  Sex: Male

DRUGS (1)
  1. METHAMPHETAMINE HYDROCHLORIDE [Suspect]
     Active Substance: METHAMPHETAMINE HYDROCHLORIDE
     Indication: Attention deficit hyperactivity disorder
     Dosage: QUANTITY: 15, ONE TABLET TWICE A DAY
     Route: 065
     Dates: start: 20241201, end: 20241203

REACTIONS (1)
  - Drug ineffective [Unknown]
